FAERS Safety Report 9374898 (Version 1)
Quarter: 2013Q2

REPORT INFORMATION
  Report Type: Spontaneous
  Country: BG (occurrence: BG)
  Receive Date: 20130628
  Receipt Date: 20130628
  Transmission Date: 20140414
  Serious: Yes (Other)
  Sender: FDA-Public Use
  Company Number: BG-SANOFI-AVENTIS-2013SA064282

PATIENT
  Age: 29 Year
  Sex: Male

DRUGS (4)
  1. ETHAMBUTOL [Suspect]
     Indication: PULMONARY TUBERCULOSIS
     Route: 065
  2. RIFAMPICIN [Suspect]
     Indication: PULMONARY TUBERCULOSIS
     Route: 065
  3. PYRAZINAMIDE [Suspect]
     Indication: PULMONARY TUBERCULOSIS
     Route: 065
  4. ISONIAZID [Suspect]
     Indication: PULMONARY TUBERCULOSIS
     Route: 065

REACTIONS (2)
  - Mitochondrial encephalomyopathy [Unknown]
  - Condition aggravated [Unknown]
